FAERS Safety Report 5923589-X (Version None)
Quarter: 2008Q4

REPORT INFORMATION
  Report Type: 
  Country: None (occurrence: None)
  Receive Date: 20081015
  Receipt Date: 20080930
  Transmission Date: 20090506
  Serious: Yes (Hospitalization, Other)
  Sender: FDA-Public Use
  Company Number: A-NJ2008-21999

PATIENT
  Age: 70 Year
  Sex: Female

DRUGS (13)
  1. TRACLEER [Suspect]
     Indication: PULMONARY HYPERTENSION
     Dosage: 125 MG, BID, ORAL, 62.5 MG, BID, ORAL
     Route: 048
     Dates: start: 20080801, end: 20080916
  2. TRACLEER [Suspect]
     Indication: PULMONARY HYPERTENSION
     Dosage: 125 MG, BID, ORAL, 62.5 MG, BID, ORAL
     Route: 048
     Dates: start: 20080707
  3. SIMVASTATIN [Suspect]
     Dosage: 40 MG, OD
     Dates: start: 20071201, end: 20080916
  4. COUMADIN [Concomitant]
  5. OMEPRAZOLE [Concomitant]
  6. SPIRONOLACTONE [Concomitant]
  7. DIGOXIN [Concomitant]
  8. TOPROL-XL [Concomitant]
  9. LASIX [Concomitant]
  10. FOLIC ACID [Concomitant]
  11. IRON (IRON) [Concomitant]
  12. PAXIL [Concomitant]
  13. POTASSIUM (POTASSIUM) [Concomitant]

REACTIONS (22)
  - ANAEMIA [None]
  - ASTHENIA [None]
  - BRONCHITIS [None]
  - COAGULOPATHY [None]
  - DIARRHOEA [None]
  - DRUG INTERACTION [None]
  - GALLBLADDER DISORDER [None]
  - GASTROINTESTINAL ARTERIOVENOUS MALFORMATION [None]
  - GASTROINTESTINAL HAEMORRHAGE [None]
  - HALLUCINATION [None]
  - HEPATIC CONGESTION [None]
  - HEPATIC FAILURE [None]
  - INCORRECT DOSE ADMINISTERED [None]
  - MENTAL STATUS CHANGES [None]
  - NAUSEA [None]
  - NODAL RHYTHM [None]
  - PLEURAL EFFUSION [None]
  - RENAL FAILURE ACUTE [None]
  - RENAL TUBULAR NECROSIS [None]
  - TACHYPNOEA [None]
  - THERAPEUTIC AGENT TOXICITY [None]
  - VOMITING [None]
